FAERS Safety Report 4519711-2 (Version None)
Quarter: 2004Q4

REPORT INFORMATION
  Report Type: 
  Country: None (occurrence: None)
  Receive Date: 20041206
  Receipt Date: 20041123
  Transmission Date: 20050328
  Serious: Yes (Other)
  Sender: FDA-Public Use
  Company Number: PHBS2004BR15858

PATIENT
  Age: 84 Year
  Sex: Male

DRUGS (1)
  1. ADELFAN-ESIDREX [Suspect]
     Indication: HYPERTENSION
     Route: 048

REACTIONS (3)
  - OPTIC ISCHAEMIC NEUROPATHY [None]
  - RETINAL VASCULAR DISORDER [None]
  - VISUAL ACUITY REDUCED [None]
